FAERS Safety Report 21341649 (Version 1)
Quarter: 2022Q3

REPORT INFORMATION
  Report Type: Spontaneous
  Country: US (occurrence: None)
  Receive Date: 20220915
  Receipt Date: 20220915
  Transmission Date: 20221027
  Serious: No
  Sender: FDA-Public Use
  Company Number: None

PATIENT
  Age: 45 Year
  Sex: Female
  Weight: 108 kg

DRUGS (4)
  1. GAMMAGARD [Suspect]
     Active Substance: HUMAN IMMUNOGLOBULIN G
     Indication: Multiple sclerosis
     Route: 042
  2. SODIUM CHLORIDE [Concomitant]
     Active Substance: SODIUM CHLORIDE
  3. Diphenhydramine Oral [Concomitant]
  4. Acetaminophen Oral [Concomitant]

REACTIONS (4)
  - Nausea [None]
  - Vomiting [None]
  - Insomnia [None]
  - Infusion related reaction [None]

NARRATIVE: CASE EVENT DATE: 20220906
